FAERS Safety Report 4395749-3 (Version None)
Quarter: 2004Q3

REPORT INFORMATION
  Report Type: 
  Country: None (occurrence: None)
  Receive Date: 20040708
  Receipt Date: 20040626
  Transmission Date: 20050211
  Serious: Yes (Hospitalization)
  Sender: FDA-Public Use
  Company Number: 163-20785-04070006

PATIENT
  Age: 60 Year
  Sex: Male
  Weight: 72.5755 kg

DRUGS (7)
  1. THALOMID [Suspect]
     Indication: MULTIPLE MYELOMA
     Dosage: SEE IMAGE
     Route: 048
     Dates: start: 20040507
  2. SOLU-MEDROL [Suspect]
     Indication: CHRONIC OBSTRUCTIVE AIRWAYS DISEASE
  3. STEROIDS (CORTICOSTEROIDS) [Concomitant]
  4. OXYCONTIN [Concomitant]
  5. ATIVAN [Concomitant]
  6. DULCOLAX [Concomitant]
  7. FREELAX [Concomitant]

REACTIONS (4)
  - BRONCHITIS [None]
  - CHRONIC OBSTRUCTIVE AIRWAYS DISEASE EXACERBATED [None]
  - CONSTIPATION [None]
  - TREMOR [None]
